FAERS Safety Report 6544552-4 (Version None)
Quarter: 2010Q2

REPORT INFORMATION
  Report Type: 
  Country: None (occurrence: None)
  Receive Date: 20100120
  Receipt Date: 20100120
  Transmission Date: 20101027
  Serious: Yes (Life-Threatening, Hospitalization)
  Sender: FDA-Public Use
  Company Number: None

PATIENT
  Sex: Male
  Weight: 32.4 kg

DRUGS (2)
  1. PEGINTRON 80MICROGRAM/0.5ML SCHERING CORPORATION [Suspect]
     Indication: HEPATITIS C
     Dosage: 0.4ML (64 MICROGRAMS) ONE DOSE SUBCUTANEOUS
     Route: 058
     Dates: start: 20100107
  2. REBETOL [Suspect]
     Dosage: 6 ML (240 MG) ONE DOSE ORAL
     Route: 048
     Dates: start: 20100107

REACTIONS (33)
  - ACUTE RESPIRATORY DISTRESS SYNDROME [None]
  - ALANINE AMINOTRANSFERASE INCREASED [None]
  - ASPARTATE AMINOTRANSFERASE INCREASED [None]
  - BLOOD BILIRUBIN INCREASED [None]
  - BLOOD CREATININE INCREASED [None]
  - COMA [None]
  - CONVULSION [None]
  - DISSEMINATED INTRAVASCULAR COAGULATION [None]
  - DYSKINESIA [None]
  - ELECTROENCEPHALOGRAM ABNORMAL [None]
  - ELECTROLYTE IMBALANCE [None]
  - GENERALISED OEDEMA [None]
  - HEADACHE [None]
  - HYPOTENSION [None]
  - INTERNATIONAL NORMALISED RATIO INCREASED [None]
  - LACTIC ACIDOSIS [None]
  - LIPASE INCREASED [None]
  - MENTAL STATUS CHANGES [None]
  - MITOCHONDRIAL TOXICITY [None]
  - MULTI-ORGAN DISORDER [None]
  - NEPHROGENIC DIABETES INSIPIDUS [None]
  - PETECHIAE [None]
  - PULMONARY OEDEMA [None]
  - PYREXIA [None]
  - RASH MACULO-PAPULAR [None]
  - RESPIRATORY DISTRESS [None]
  - SHOCK [None]
  - TRANSAMINASES INCREASED [None]
  - TREMOR [None]
  - UNRESPONSIVE TO STIMULI [None]
  - URINE OUTPUT INCREASED [None]
  - URTICARIA [None]
  - VOMITING [None]
